FAERS Safety Report 5119723-4 (Version None)
Quarter: 2006Q4

REPORT INFORMATION
  Report Type: 
  Country: None (occurrence: None)
  Receive Date: 20061003
  Receipt Date: 20060728
  Transmission Date: 20070319
  Serious: Yes (Life-Threatening)
  Sender: FDA-Public Use
  Company Number: US-KINGPHARMUSA00001-K200600976

PATIENT
  Age: 49 Year
  Sex: Male
  Weight: 85 kg

DRUGS (8)
  1. ALTACE [Suspect]
     Indication: CARDIAC FAILURE
     Dosage: 2.5 MG, QD
     Route: 048
     Dates: start: 20050715, end: 20060607
  2. HYDROCORTISONE [Suspect]
     Indication: ADDISON'S DISEASE
     Dosage: 50 MG, QD
     Route: 048
     Dates: start: 20050715
  3. NEORECORMON [Suspect]
     Dosage: 30 KU, QW
     Route: 058
     Dates: start: 20051015
  4. VALACYCLOVIR [Suspect]
     Dosage: 500 MG, BID
     Route: 048
     Dates: start: 20051015, end: 20060607
  5. DESLORATADINE [Suspect]
     Indication: PRURITUS
     Dosage: 1 U, QD
     Route: 048
     Dates: start: 20060520, end: 20060607
  6. FLUDARABINE [Concomitant]
     Dosage: 25 MG/M2, UNK
     Dates: start: 20051012, end: 20060323
  7. CYCLOPHOSPHAMIDE [Concomitant]
     Dosage: 250 MG/M2, D2-D4
     Dates: start: 20051012, end: 20060323
  8. RITUXIMAB [Concomitant]
     Dosage: D1
     Dates: start: 20051012, end: 20060323

REACTIONS (6)
  - ANAEMIA [None]
  - APLASIA PURE RED CELL [None]
  - BONE MARROW FAILURE [None]
  - C-REACTIVE PROTEIN INCREASED [None]
  - ERYTHEMA INFECTIOSUM [None]
  - IMMUNOSUPPRESSION [None]
